FAERS Safety Report 25188676 (Version 2)
Quarter: 2025Q2

REPORT INFORMATION
  Report Type: Spontaneous
  Country: US (occurrence: US)
  Receive Date: 20250411
  Receipt Date: 20250415
  Transmission Date: 20250716
  Serious: No
  Sender: ABBVIE
  Company Number: US-ABBVIE-6224022

PATIENT
  Age: 59 Year
  Sex: Male
  Weight: 81.6 kg

DRUGS (2)
  1. FOSCARBIDOPA\FOSLEVODOPA [Suspect]
     Active Substance: FOSCARBIDOPA\FOSLEVODOPA
     Indication: Parkinson^s disease
     Route: 058
     Dates: start: 20250325
  2. AMANTADINE [Concomitant]
     Active Substance: AMANTADINE
     Indication: Dyskinesia

REACTIONS (4)
  - Infusion site pain [Not Recovered/Not Resolved]
  - Infusion site swelling [Recovering/Resolving]
  - Infusion site haemorrhage [Recovered/Resolved]
  - Infusion site reaction [Unknown]

NARRATIVE: CASE EVENT DATE: 20250327
